FAERS Safety Report 6419851-7 (Version None)
Quarter: 2009Q4

REPORT INFORMATION
  Report Type: 
  Country: None (occurrence: None)
  Receive Date: 20091029
  Receipt Date: 20091019
  Transmission Date: 20100525
  Serious: Yes (Death, Hospitalization, Other)
  Sender: FDA-Public Use
  Company Number: US-ELI_LILLY_AND_COMPANY-US200907002111

PATIENT
  Age: 62 Year
  Sex: Female
  Weight: 90.703 kg

DRUGS (1)
  1. FORTEO [Suspect]
     Indication: OSTEOPOROSIS
     Dosage: 20 UG, UNK
     Dates: end: 20090101

REACTIONS (4)
  - ARRHYTHMIA [None]
  - CARDIAC ARREST [None]
  - COMA [None]
  - HIP FRACTURE [None]
